FAERS Safety Report 24404052 (Version 1)
Quarter: 2024Q4

REPORT INFORMATION
  Report Type: Spontaneous
  Country: None (occurrence: US)
  Receive Date: 20241007
  Receipt Date: 20241007
  Transmission Date: 20250115
  Serious: Yes (Hospitalization, Other)
  Sender: ALEMBIC
  Company Number: US-ALEMBIC PHARMACUETICALS LIMITED-2024SCAL001407

PATIENT

DRUGS (1)
  1. BUPROPION HYDROCHLORIDE [Suspect]
     Active Substance: BUPROPION HYDROCHLORIDE
     Indication: Product used for unknown indication
     Dosage: UNK
     Route: 065

REACTIONS (18)
  - Toxic epidermal necrolysis [Recovering/Resolving]
  - Respiratory tract oedema [Unknown]
  - Pyrexia [Unknown]
  - Hypoxia [Unknown]
  - Rash [Recovered/Resolved]
  - Heart rate increased [Unknown]
  - White blood cell count increased [Recovered/Resolved]
  - Left ventricular dysfunction [Unknown]
  - Ejection fraction decreased [Unknown]
  - Skin exfoliation [Recovered/Resolved]
  - Blister rupture [Recovered/Resolved]
  - Noninfective conjunctivitis [Unknown]
  - Stomatitis [Unknown]
  - Haemodynamic instability [Unknown]
  - Obstructive airways disorder [Unknown]
  - Breath sounds abnormal [Unknown]
  - Laryngeal oedema [Unknown]
  - Dermatitis bullous [Recovered/Resolved]
